FAERS Safety Report 9966980 (Version 3)
Quarter: 2014Q2

REPORT INFORMATION
  Report Type: Report from Study
  Country: TR (occurrence: TR)
  Receive Date: 20140305
  Receipt Date: 20140421
  Transmission Date: 20141212
  Serious: No
  Sender: FDA-Public Use
  Company Number: TR-US-EMD SERONO, INC.-7242579

PATIENT
  Sex: Female
  Weight: 70 kg

DRUGS (5)
  1. REBIF [Suspect]
     Indication: MULTIPLE SCLEROSIS
     Route: 058
     Dates: start: 201307
  2. MINOSET [Suspect]
     Indication: ANALGESIC THERAPY
     Route: 048
  3. MINOSET [Suspect]
     Indication: ANTIPYRESIS
  4. DOLOREX                            /00068902/ [Suspect]
     Indication: ANALGESIC THERAPY
  5. DOLOREX                            /00068902/ [Suspect]
     Indication: ANTIPYRESIS

REACTIONS (5)
  - Cerebral cyst [Not Recovered/Not Resolved]
  - Alopecia [Not Recovered/Not Resolved]
  - Injection site pain [Not Recovered/Not Resolved]
  - Injection site erythema [Not Recovered/Not Resolved]
  - Headache [Recovering/Resolving]
